FAERS Safety Report 13359674 (Version 1)
Quarter: 2017Q1

REPORT INFORMATION
  Report Type: Spontaneous
  Country: DE (occurrence: DE)
  Receive Date: 20170322
  Receipt Date: 20170322
  Transmission Date: 20170429
  Serious: Yes (Hospitalization)
  Sender: FDA-Public Use
  Company Number: DE-SA-2016SA127680

PATIENT
  Sex: Female
  Weight: 75 kg

DRUGS (2)
  1. DALTEPARIN [Concomitant]
     Active Substance: DALTEPARIN
     Indication: THROMBOSIS
     Route: 058
     Dates: start: 201607
  2. CLEXANE [Suspect]
     Active Substance: ENOXAPARIN SODIUM
     Indication: THROMBOSIS
     Route: 058
     Dates: start: 20160107, end: 20160711

REACTIONS (4)
  - Injection site hypersensitivity [Recovered/Resolved]
  - Rash erythematous [Not Recovered/Not Resolved]
  - Foetal growth restriction [Unknown]
  - Exposure during pregnancy [Unknown]
